FAERS Safety Report 5314123-6 (Version None)
Quarter: 2007Q2

REPORT INFORMATION
  Report Type: 
  Country: None (occurrence: None)
  Receive Date: 20070426
  Receipt Date: 20070411
  Transmission Date: 20071010
  Serious: Yes (Death)
  Sender: FDA-Public Use
  Company Number: SPV1-2007-02205

PATIENT
  Age: 38 Year
  Sex: Male

DRUGS (2)
  1. PENTASA [Suspect]
     Indication: CROHN'S DISEASE
     Dosage: 3000 MG DAILY, ORAL
     Route: 048
  2. IMURAN [Suspect]
     Dosage: 75 MG DAILY, ORAL
     Route: 048
     Dates: start: 20040101, end: 20051101

REACTIONS (1)
  - T-CELL LYMPHOMA [None]
